FAERS Safety Report 7493686-9 (Version None)
Quarter: 2011Q2

REPORT INFORMATION
  Report Type: 
  Country: None (occurrence: None)
  Receive Date: 20110520
  Receipt Date: 20110506
  Transmission Date: 20111010
  Serious: Yes (Other)
  Sender: FDA-Public Use
  Company Number: US-BAYER-2011-043014

PATIENT
  Age: 26 Year
  Sex: Female
  Weight: 58.957 kg

DRUGS (4)
  1. ALLEGRA [Concomitant]
     Indication: HYPERSENSITIVITY
     Route: 048
  2. YASMIN [Suspect]
     Indication: CONTRACEPTION
     Dosage: UNK
     Dates: start: 20010101, end: 20020401
  3. YASMIN [Suspect]
     Indication: OVARIAN CYST
     Dosage: UNK
     Dates: start: 20040401, end: 20090701
  4. VITAMINS [Concomitant]

REACTIONS (3)
  - ABDOMINAL PAIN [None]
  - GALLBLADDER POLYP [None]
  - GALLBLADDER DISORDER [None]
